FAERS Safety Report 4525630-8 (Version None)
Quarter: 2004Q4

REPORT INFORMATION
  Report Type: 
  Country: None (occurrence: None)
  Receive Date: 20041213
  Receipt Date: 20041213
  Transmission Date: 20050328
  Serious: Yes (Life-Threatening)
  Sender: FDA-Public Use
  Company Number: None

PATIENT
  Sex: Male
  Weight: 83.9154 kg

DRUGS (3)
  1. CISPLATIN [Suspect]
     Indication: SQUAMOUS CELL CARCINOMA
     Dosage: 235 MG DAY 1 INTRAVENOUS
     Route: 042
     Dates: start: 20040923, end: 20040923
  2. VICODIN [Concomitant]
  3. ZITHROMAX [Concomitant]

REACTIONS (3)
  - HYPERURICAEMIA [None]
  - NEPHROPATHY TOXIC [None]
  - RENAL FAILURE [None]
